FAERS Safety Report 5382159-5 (Version None)
Quarter: 2007Q3

REPORT INFORMATION
  Report Type: 
  Country: None (occurrence: None)
  Receive Date: 20070709
  Receipt Date: 20070628
  Transmission Date: 20080115
  Serious: Yes (Other)
  Sender: FDA-Public Use
  Company Number: JP-PFIZER INC-2007051830

PATIENT
  Sex: Male
  Weight: 66 kg

DRUGS (8)
  1. DETRUSITOL LA [Suspect]
     Indication: HYPERTONIC BLADDER
     Route: 048
     Dates: start: 20060824, end: 20070516
  2. FLOMOX [Suspect]
     Indication: CYSTITIS
     Route: 048
     Dates: start: 20060921, end: 20060927
  3. LEVOFLOXACIN [Suspect]
     Indication: CYSTITIS
     Route: 048
     Dates: start: 20061031, end: 20061106
  4. BLOPRESS [Concomitant]
     Route: 048
  5. FLUITRAN [Concomitant]
     Route: 048
  6. HYPEN [Concomitant]
     Route: 048
  7. COLONEL [Concomitant]
     Route: 048
  8. BIOFERMIN [Concomitant]
     Route: 048

REACTIONS (4)
  - ALANINE AMINOTRANSFERASE INCREASED [None]
  - ASPARTATE AMINOTRANSFERASE INCREASED [None]
  - CYSTITIS [None]
  - THIRST [None]
